FAERS Safety Report 9403581 (Version 1)
Quarter: 2013Q3

REPORT INFORMATION
  Report Type: Spontaneous
  Country: PL (occurrence: PL)
  Receive Date: 20130717
  Receipt Date: 20130717
  Transmission Date: 20140515
  Serious: Yes (Other)
  Sender: FDA-Public Use
  Company Number: PL-AMGEN-POLSP2013049593

PATIENT
  Age: 52 Year
  Sex: Female
  Weight: 60 kg

DRUGS (1)
  1. ENBREL [Suspect]
     Indication: RHEUMATOID ARTHRITIS
     Dosage: 50 MG, WEEKLY
     Route: 058
     Dates: start: 20130104, end: 20130516

REACTIONS (2)
  - Body temperature increased [Recovered/Resolved]
  - Injection site swelling [Recovered/Resolved]
